FAERS Safety Report 18957990 (Version 2)
Quarter: 2021Q2

REPORT INFORMATION
  Report Type: Spontaneous
  Country: US (occurrence: US)
  Receive Date: 20210302
  Receipt Date: 20210412
  Transmission Date: 20210717
  Serious: Yes (Other)
  Sender: FDA-Public Use
  Company Number: US-PFIZER INC-2020241708

PATIENT
  Age: 81 Year
  Sex: Female

DRUGS (4)
  1. RETACRIT [Suspect]
     Active Substance: EPOETIN ALFA-EPBX
     Dosage: 60000 IU (20000 UNIT INJECTION EVERY WEEK 4 WEEK + 40000 IU INJECTION EVERY 4 WEEKS)
  2. RETACRIT [Suspect]
     Active Substance: EPOETIN ALFA-EPBX
     Dosage: 2 INJECTIONS (80,000) EVERY 4 WEEKS
  3. RETACRIT [Suspect]
     Active Substance: EPOETIN ALFA-EPBX
     Dosage: 40000 IU/ML, WEEKLY
  4. RETACRIT [Suspect]
     Active Substance: EPOETIN ALFA-EPBX
     Indication: ANAEMIA OF CHRONIC DISEASE
     Dosage: 40,000 UNITS

REACTIONS (3)
  - Cataract [Unknown]
  - Cardiac failure congestive [Unknown]
  - Atrial fibrillation [Unknown]
